FAERS Safety Report 9522140 (Version 1)
Quarter: 2013Q3

REPORT INFORMATION
  Report Type: Spontaneous
  Country: US (occurrence: US)
  Receive Date: 20130913
  Receipt Date: 20130913
  Transmission Date: 20140515
  Serious: Yes (Other)
  Sender: FDA-Public Use
  Company Number: US-PFIZER INC-2013261272

PATIENT
  Age: 72 Year
  Sex: Male
  Weight: 72.56 kg

DRUGS (6)
  1. INLYTA [Suspect]
     Indication: BRAIN CANCER METASTATIC
     Dosage: 10 MG, UNK
     Dates: start: 201301
  2. INLYTA [Suspect]
     Dosage: 2 MG, 2X/DAY
     Dates: start: 2013
  3. PROTONIX [Concomitant]
     Dosage: UNK
  4. ZOLOFT [Concomitant]
     Dosage: 50 MG, UNK
  5. SIMVASTATIN [Concomitant]
     Dosage: 40 MG, UNK
  6. XARELTO [Concomitant]
     Indication: ANTICOAGULANT THERAPY
     Dosage: UNK

REACTIONS (5)
  - Apparent death [Unknown]
  - Malaise [Unknown]
  - Hiccups [Recovering/Resolving]
  - Gait disturbance [Recovering/Resolving]
  - Memory impairment [Recovering/Resolving]
